FAERS Safety Report 7607625-0 (Version None)
Quarter: 2011Q3

REPORT INFORMATION
  Report Type: 
  Country: None (occurrence: None)
  Receive Date: 20110713
  Receipt Date: 20110309
  Transmission Date: 20111222
  Serious: Yes (Hospitalization)
  Sender: FDA-Public Use
  Company Number: PHHY2011TW21339

PATIENT
  Sex: Female

DRUGS (4)
  1. AZITHROMYCIN [Concomitant]
     Dosage: 500 MG, UNK
     Route: 048
  2. AUGMENTIN '125' [Concomitant]
  3. EXJADE [Suspect]
  4. PIPERACILLIN AND TAZOBACTAM [Concomitant]
     Dosage: 4.5 G, Q8H

REACTIONS (4)
  - PYREXIA [None]
  - DYSPNOEA [None]
  - COUGH [None]
  - BRONCHOPNEUMONIA [None]
